FAERS Safety Report 8471201 (Version 3)
Quarter: 2012Q4

REPORT INFORMATION
  Report Type: 
  Country: US (occurrence: US)
  Receive Date: 20120322
  Receipt Date: 20120925
  Transmission Date: 20130627
  Serious: Yes (Hospitalization, Other)
  Sender: FDA-Public Use
  Company Number: US-JNJFOC-20120306543

PATIENT
  Age: 54 Year
  Sex: Female
  Weight: 42.64 kg

DRUGS (21)
  1. DURAGESIC [Suspect]
     Indication: SPINAL FUSION SURGERY
     Route: 062
     Dates: start: 2010
  2. DURAGESIC [Suspect]
     Indication: ARTHRITIS
     Route: 062
     Dates: start: 2010
  3. DURAGESIC [Suspect]
     Indication: INTERVERTEBRAL DISC DEGENERATION
     Route: 062
     Dates: start: 2010
  4. FLEXERIL [Suspect]
     Indication: MUSCLE TIGHTNESS
     Route: 048
     Dates: end: 2011
  5. FLEXERIL [Suspect]
     Indication: MUSCLE SPASMS
     Route: 048
     Dates: end: 2011
  6. OXYCONTIN [Suspect]
     Indication: PRODUCT USED FOR UNKNOWN INDICATION
     Dosage: 100+25 mcg
     Route: 065
     Dates: end: 2010
  7. DURAGESIC [Suspect]
     Indication: PAIN
     Route: 062
     Dates: start: 2010
  8. DURAGESIC [Concomitant]
     Indication: ARTHRITIS
     Dosage: 100+25 mcg
     Route: 062
  9. DURAGESIC RESERVOIR [Concomitant]
     Indication: INTERVERTEBRAL DISC DEGENERATION
     Dosage: 100+25 mcg
     Route: 062
  10. LORATAB [Concomitant]
     Indication: PAIN
     Dosage: 10-325 mg 1-2 times every 4-6 hours
     Route: 048
  11. CRESTOR [Concomitant]
     Indication: BLOOD CHOLESTEROL INCREASED
     Route: 048
  12. CYMBALTA [Concomitant]
     Indication: DEPRESSION
     Route: 048
  13. OMEPRAZOLE [Concomitant]
     Indication: GASTROOESOPHAGEAL REFLUX DISEASE
     Route: 048
  14. PREMARIN [Concomitant]
     Indication: OESTROGEN REPLACEMENT THERAPY
     Route: 048
  15. ALBUTEROL [Concomitant]
     Indication: ASTHMA
     Route: 055
  16. ALBUTEROL [Concomitant]
     Indication: CHRONIC OBSTRUCTIVE PULMONARY DISEASE
     Route: 055
  17. SPIRIVA [Concomitant]
     Indication: ASTHMA
     Route: 055
  18. SPIRIVA [Concomitant]
     Indication: CHRONIC OBSTRUCTIVE PULMONARY DISEASE
     Route: 055
  19. PROMETHAZINE [Concomitant]
     Indication: NAUSEA
     Route: 048
  20. PROAIR HFA [Concomitant]
     Indication: ASTHMA
     Route: 055
  21. PROAIR HFA [Concomitant]
     Indication: CHRONIC OBSTRUCTIVE PULMONARY DISEASE
     Route: 055

REACTIONS (15)
  - Cataract [Recovered/Resolved]
  - Headache [Not Recovered/Not Resolved]
  - Visual impairment [Not Recovered/Not Resolved]
  - Osteonecrosis [Recovered/Resolved]
  - Amnesia [Not Recovered/Not Resolved]
  - Hyperhidrosis [Unknown]
  - Pain [Not Recovered/Not Resolved]
  - Feeling abnormal [Not Recovered/Not Resolved]
  - Inappropriate schedule of drug administration [Not Recovered/Not Resolved]
  - Wrong technique in drug usage process [Unknown]
  - Drug ineffective [Not Recovered/Not Resolved]
  - Product quality issue [Unknown]
  - Product adhesion issue [None]
  - Product packaging quantity issue [None]
  - Ocular vascular disorder [None]
